FAERS Safety Report 4323514-1 (Version None)
Quarter: 2004Q1

REPORT INFORMATION
  Report Type: 
  Country: None (occurrence: None)
  Receive Date: 20040322
  Receipt Date: 20040308
  Transmission Date: 20041129
  Serious: Yes (Hospitalization)
  Sender: FDA-Public Use
  Company Number: 04P-150-0252872-00

PATIENT
  Age: 67 Year
  Sex: Male

DRUGS (7)
  1. HUMIRA [Suspect]
     Indication: RHEUMATOID ARTHRITIS
     Dosage: 40 MG, 1 IN 2 WK, SUBCUTANEOUS
     Route: 058
     Dates: start: 20031215
  2. METHOTREXATE [Suspect]
     Dosage: 15 MG, 1 IN 1 WK
  3. PREDNOSOLONE [Concomitant]
  4. SULFASALAZINE [Concomitant]
  5. NAPROXEN [Concomitant]
  6. FOLACIN [Concomitant]
  7. CALCIPOS-D [Concomitant]

REACTIONS (2)
  - BRONCHOPNEUMONIA [None]
  - PNEUMONITIS [None]
